FAERS Safety Report 24561647 (Version 1)
Quarter: 2024Q4

REPORT INFORMATION
  Report Type: Spontaneous
  Country: NL (occurrence: NL)
  Receive Date: 20241029
  Receipt Date: 20241029
  Transmission Date: 20250114
  Serious: Yes (Life-Threatening)
  Sender: TEVA
  Company Number: None

PATIENT
  Age: 15 Year
  Sex: Female
  Weight: 46 kg

DRUGS (2)
  1. QUETIAPINE [Suspect]
     Active Substance: QUETIAPINE
     Indication: Anxiety disorder
     Dosage: 2 X 2 PIECES PER DAY; TABLET MGA / BRAND NAME NOT SPECIFIED
     Route: 065
     Dates: start: 20240813, end: 20240930
  2. ETHINYL ESTRADIOL\LEVONORGESTREL ACETATE [Concomitant]
     Active Substance: ETHINYL ESTRADIOL\LEVONORGESTREL ACETATE
     Indication: Product used for unknown indication
     Dosage: 30/150 ?G (MICROGRAM); ETHINYLESTRADIOL/LEVONORGESTREL TABLET 30/150UG / 30 COATED TABLET
     Route: 065

REACTIONS (3)
  - Aggression [Recovered/Resolved]
  - Depressed mood [Recovered/Resolved]
  - Suicidal ideation [Recovered/Resolved]
